FAERS Safety Report 15473655 (Version 3)
Quarter: 2018Q4

REPORT INFORMATION
  Report Type: Report from Study
  Country: None (occurrence: RU)
  Receive Date: 20181008
  Receipt Date: 20181106
  Transmission Date: 20190205
  Serious: Yes (Other)
  Sender: FDA-Public Use
  Company Number: RU-BIORASI-18-320-2-RUS-00008

PATIENT
  Age: 37 Year
  Sex: Male
  Weight: 86 kg

DRUGS (1)
  1. PODOFILOX 0.5% [Suspect]
     Active Substance: PODOFILOX
     Route: 061
     Dates: start: 20180912, end: 20180913

REACTIONS (1)
  - Application site necrosis [Recovered/Resolved with Sequelae]

NARRATIVE: CASE EVENT DATE: 20180915
